FAERS Safety Report 26210845 (Version 1)
Quarter: 2025Q4

REPORT INFORMATION
  Report Type: Spontaneous
  Country: US (occurrence: US)
  Receive Date: 20251230
  Receipt Date: 20251230
  Transmission Date: 20260117
  Serious: No
  Sender: TEVA
  Company Number: US-TEVA-VS-3404222

PATIENT

DRUGS (1)
  1. SUMATRIPTAN [Suspect]
     Active Substance: SUMATRIPTAN
     Indication: Migraine
     Dosage: 4/0.5MG/ML
     Route: 065

REACTIONS (3)
  - Herpes zoster [Unknown]
  - Therapeutic response unexpected [Unknown]
  - Pain [Unknown]
